FAERS Safety Report 8938606 (Version 1)
Quarter: 2012Q4

REPORT INFORMATION
  Report Type: 
  Country: FR (occurrence: FR)
  Receive Date: 20121130
  Receipt Date: 20121130
  Transmission Date: 20130627
  Serious: Yes (Life-Threatening)
  Sender: FDA-Public Use
  Company Number: FR-ASTRAZENECA-2012SE89359

PATIENT
  Age: 22511 Day
  Sex: Female

DRUGS (6)
  1. DIPRIVAN [Suspect]
     Indication: ANAESTHESIA
     Route: 042
     Dates: start: 20120615, end: 20120615
  2. CELOCURINE [Suspect]
     Indication: ANAESTHESIA
     Route: 042
     Dates: start: 20120615, end: 20120615
  3. SUFENTA [Suspect]
     Indication: ANAESTHESIA
     Route: 042
     Dates: start: 20120615, end: 20120615
  4. KETAMINE [Suspect]
     Indication: ANAESTHESIA
     Route: 042
     Dates: start: 20120615, end: 20120615
  5. TAREG [Concomitant]
     Route: 048
  6. FEMARA [Concomitant]
     Route: 048

REACTIONS (1)
  - Anaphylactic shock [Recovered/Resolved]
